FAERS Safety Report 4798837-2 (Version None)
Quarter: 2005Q4

REPORT INFORMATION
  Report Type: 
  Country: None (occurrence: None)
  Receive Date: 20051014
  Receipt Date: 20051007
  Transmission Date: 20060501
  Serious: Yes (Hospitalization, Other)
  Sender: FDA-Public Use
  Company Number: US-BRISTOL-MYERS SQUIBB COMPANY-13136718

PATIENT
  Age: 60 Year
  Sex: Male

DRUGS (22)
  1. BLINDED: MURAGLITAZAR [Suspect]
     Indication: DIABETES MELLITUS NON-INSULIN-DEPENDENT
     Route: 048
     Dates: start: 20020121
  2. PIOGLITAZONE HCL [Suspect]
     Indication: DIABETES MELLITUS NON-INSULIN-DEPENDENT
     Route: 048
     Dates: start: 20020121
  3. MULTI-VITAMIN [Concomitant]
     Indication: VITAMIN SUPPLEMENTATION
     Dosage: DOSAGE FORM = TABLET
     Route: 048
     Dates: start: 20011101
  4. CALCIUM GLUCONATE [Concomitant]
     Indication: VITAMIN SUPPLEMENTATION
     Route: 048
     Dates: start: 20011101
  5. VITAMIN E [Concomitant]
     Indication: VITAMIN SUPPLEMENTATION
     Route: 048
     Dates: start: 20011101
  6. VITAMIN A AND D [Concomitant]
     Indication: VITAMIN SUPPLEMENTATION
     Dosage: DOSAGE FORM = TABLET
     Route: 048
     Dates: start: 20011101
  7. VITAMIN B COMPLEX CAP [Concomitant]
     Indication: VITAMIN SUPPLEMENTATION
     Dosage: DOSAGE FORM = TABLET
     Route: 048
     Dates: start: 20011101
  8. FLAXSEED OIL [Concomitant]
     Indication: VITAMIN SUPPLEMENTATION
     Route: 048
     Dates: start: 20011101
  9. NAPROXEN [Concomitant]
     Indication: BACK PAIN
     Route: 048
     Dates: start: 20000101
  10. TYLENOL (CAPLET) [Concomitant]
     Indication: HEADACHE
     Dosage: DOSAGE FORM = 2 TABLETS
     Route: 048
     Dates: start: 19700101
  11. PREVACID [Concomitant]
     Indication: GASTROOESOPHAGEAL REFLUX DISEASE
     Route: 048
     Dates: start: 20010801
  12. FLONASE [Concomitant]
     Indication: RHINITIS SEASONAL
     Dosage: DOSAGE FORM = 2 PUFFS
     Route: 055
     Dates: start: 20010901
  13. BENADRYL [Concomitant]
     Indication: RHINITIS SEASONAL
     Route: 048
     Dates: start: 19980101
  14. ACTIFED [Concomitant]
     Indication: RHINITIS SEASONAL
     Dosage: DOSAGE FORM = ONE TABLET
     Route: 048
     Dates: start: 19980101
  15. CHLOR-TRIMETON [Concomitant]
     Indication: RHINITIS SEASONAL
     Dosage: DOSAGE FORM = 1 TABLET
     Route: 048
     Dates: start: 19980101
  16. TAVIST-D [Concomitant]
     Indication: RHINITIS SEASONAL
     Dosage: DOSAGE FORM = 1 TABLET
     Route: 048
     Dates: start: 19980101
  17. PEPTO-BISMOL [Concomitant]
     Indication: GASTROOESOPHAGEAL REFLUX DISEASE
     Route: 048
     Dates: start: 19980101
  18. IBUPROFEN [Concomitant]
     Indication: PAIN
     Route: 048
     Dates: start: 20030303
  19. LIPITOR [Concomitant]
     Indication: DYSLIPIDAEMIA
     Route: 048
     Dates: start: 20021009
  20. APRODINE [Concomitant]
     Indication: RHINITIS SEASONAL
     Dosage: DOSAGE FORM = 1 TABLET
     Route: 048
     Dates: start: 19980101
  21. METFORMIN HCL [Concomitant]
     Indication: DIABETES MELLITUS
     Route: 048
     Dates: start: 20050412
  22. VITAMIN B6 [Concomitant]
     Indication: SENSORY DISTURBANCE
     Dosage: DOSAGE FORM = TABLET
     Route: 048
     Dates: start: 20050706

REACTIONS (2)
  - MALIGNANT NEOPLASM OF SPINAL CORD [None]
  - SPINAL CORD NEOPLASM [None]
